FAERS Safety Report 9351903 (Version 2)
Quarter: 2013Q3

REPORT INFORMATION
  Report Type: Spontaneous
  Country: US (occurrence: US)
  Receive Date: 20130617
  Receipt Date: 20130828
  Transmission Date: 20140515
  Serious: Yes (Other)
  Sender: FDA-Public Use
  Company Number: US-GLAXOSMITHKLINE-A1027287A

PATIENT
  Sex: Male

DRUGS (2)
  1. VOTRIENT [Suspect]
     Dosage: 800MG PER DAY
     Dates: start: 20130401
  2. PAIN MEDICATION [Concomitant]

REACTIONS (7)
  - Mass excision [Unknown]
  - Hair colour changes [Unknown]
  - Ill-defined disorder [Unknown]
  - Emotional disorder [Unknown]
  - Diarrhoea [Unknown]
  - Fatigue [Unknown]
  - Nausea [Unknown]
